FAERS Safety Report 9645116 (Version 2)
Quarter: 2014Q1

REPORT INFORMATION
  Report Type: Report from Study
  Country: FR (occurrence: FR)
  Receive Date: 20131025
  Receipt Date: 20140205
  Transmission Date: 20141002
  Serious: Yes (Life-Threatening, Hospitalization)
  Sender: FDA-Public Use
  Company Number: FR-UCBSA-101138

PATIENT
  Age: 67 Year
  Sex: Female
  Weight: 58 kg

DRUGS (6)
  1. CIMZIA [Suspect]
     Indication: RHEUMATOID ARTHRITIS
     Route: 058
     Dates: start: 20130618, end: 201309
  2. ARAVA [Suspect]
     Indication: RHEUMATOID ARTHRITIS
     Dosage: DAILY DOSE: 20 MG
     Route: 048
     Dates: start: 20080415
  3. TRAMADOL [Concomitant]
  4. VERAPAMIL [Concomitant]
     Dosage: UNKNOWN FREQUENCY
  5. ATARAX [Concomitant]
     Dosage: UNKNOWN DOSE,25MG STRENGTH
  6. BISOPROLOL [Concomitant]
     Dosage: UNKNOWN DOSE, 25MG STRENGTH

REACTIONS (3)
  - Disseminated tuberculosis [Recovering/Resolving]
  - Pyelonephritis [Recovering/Resolving]
  - Inappropriate schedule of drug administration [Recovered/Resolved]
